FAERS Safety Report 4980247-6 (Version None)
Quarter: 2006Q2

REPORT INFORMATION
  Report Type: 
  Country: None (occurrence: None)
  Receive Date: 20060418
  Receipt Date: 20060405
  Transmission Date: 20061013
  Serious: No
  Sender: FDA-Public Use
  Company Number: FR200602003657

PATIENT
  Age: 73 Year
  Sex: Male
  Weight: 102 kg

DRUGS (5)
  1. ALIMTA [Suspect]
     Indication: NON-SMALL CELL LUNG CANCER METASTATIC
     Dosage: 500 MG/M2, OTHER, INTRAVENOUS
     Route: 042
     Dates: start: 20060125
  2. TARDYFERON               /GFR/(FERROUS SULFATE) [Concomitant]
  3. CYANOCOBALAMIN [Concomitant]
  4. FOLIC ACID [Concomitant]
  5. DEXAMETHASONE [Concomitant]

REACTIONS (1)
  - URTICARIA [None]
